FAERS Safety Report 4334977-X (Version None)
Quarter: 2004Q2

REPORT INFORMATION
  Report Type: 
  Country: None (occurrence: None)
  Receive Date: 20040408
  Receipt Date: 20040209
  Transmission Date: 20050107
  Serious: Yes (Hospitalization)
  Sender: FDA-Public Use
  Company Number: JP-ROCHE-358590

PATIENT
  Age: 7 Year
  Sex: Male
  Weight: 21 kg

DRUGS (5)
  1. TAMIFLU [Suspect]
     Route: 048
     Dates: start: 20040204, end: 20040206
  2. CLARITH [Concomitant]
     Indication: COUGH
     Route: 048
     Dates: start: 20040204, end: 20040209
  3. MEPTIN [Concomitant]
     Indication: COUGH
     Route: 048
     Dates: start: 20040204, end: 20040209
  4. MUCODYNE [Concomitant]
     Indication: COUGH
     Route: 048
     Dates: start: 20040204, end: 20040209
  5. BISOLVON [Concomitant]
     Indication: COUGH
     Route: 048
     Dates: start: 20040204, end: 20040209

REACTIONS (6)
  - ABNORMAL BEHAVIOUR [None]
  - CONSTIPATION [None]
  - DYSGRAPHIA [None]
  - FLATULENCE [None]
  - MEMORY IMPAIRMENT [None]
  - MENTAL IMPAIRMENT [None]
